FAERS Safety Report 24020429 (Version 1)
Quarter: 2024Q2

REPORT INFORMATION
  Report Type: Report from Study
  Country: US (occurrence: US)
  Receive Date: 20240627
  Receipt Date: 20240627
  Transmission Date: 20240716
  Serious: Yes (Hospitalization)
  Sender: FDA-Public Use
  Company Number: US-ABBVIE-5762822

PATIENT
  Sex: Female

DRUGS (4)
  1. VENCLEXTA [Suspect]
     Active Substance: VENETOCLAX
     Indication: Malignant melanoma
     Dosage: DRUG STOP DATE MAY 2024
     Route: 048
     Dates: start: 20240510
  2. VENCLEXTA [Suspect]
     Active Substance: VENETOCLAX
     Indication: Malignant melanoma
     Route: 048
     Dates: start: 202405, end: 202405
  3. VENCLEXTA [Suspect]
     Active Substance: VENETOCLAX
     Indication: Malignant melanoma
     Route: 048
     Dates: start: 202405
  4. SPIRONOLACTONE [Suspect]
     Active Substance: SPIRONOLACTONE
     Indication: Product used for unknown indication
     Route: 065

REACTIONS (11)
  - Syncope [Unknown]
  - Off label use [Unknown]
  - Hospitalisation [Not Recovered/Not Resolved]
  - Confusional state [Unknown]
  - Renal disorder [Unknown]
  - Diplopia [Not Recovered/Not Resolved]
  - Memory impairment [Unknown]
  - Vision blurred [Not Recovered/Not Resolved]
  - Dyspnoea [Unknown]
  - Fatigue [Unknown]
  - Vomiting [Unknown]

NARRATIVE: CASE EVENT DATE: 20240101
